FAERS Safety Report 4810412-X (Version None)
Quarter: 2005Q4

REPORT INFORMATION
  Report Type: 
  Country: None (occurrence: None)
  Receive Date: 20051024
  Receipt Date: 20051014
  Transmission Date: 20060501
  Serious: Yes (Hospitalization, Other)
  Sender: FDA-Public Use
  Company Number: KII-2005-0019118

PATIENT
  Age: 20 Year
  Sex: Female

DRUGS (3)
  1. OXYCODONE HCL [Suspect]
     Dosage: SEE TEXT, ORAL
  2. AMITRIPTYLINE HCL [Suspect]
     Dosage: SEE TEXT, ORAL
     Route: 048
  3. BENZODIAZEPINE DERIVATIVES () [Suspect]
     Dosage: ORAL
     Route: 048

REACTIONS (9)
  - AGITATION [None]
  - BLOOD CREATINE PHOSPHOKINASE INCREASED [None]
  - BLOOD PRESSURE DIASTOLIC INCREASED [None]
  - CONFUSIONAL STATE [None]
  - HEART RATE INCREASED [None]
  - HYPERHIDROSIS [None]
  - INTENTIONAL OVERDOSE [None]
  - LETHARGY [None]
  - MULTIPLE DRUG OVERDOSE [None]
